FAERS Safety Report 6207231-9 (Version None)
Quarter: 2009Q2

REPORT INFORMATION
  Report Type: 
  Country: None (occurrence: None)
  Receive Date: 20090528
  Receipt Date: 20090525
  Transmission Date: 20091009
  Serious: Yes (Death, Hospitalization)
  Sender: FDA-Public Use
  Company Number: PHHY2008CA33612

PATIENT
  Sex: Male

DRUGS (2)
  1. EXJADE [Suspect]
     Indication: IRON OVERLOAD
     Dosage: 750 MG, UNK
     Route: 048
     Dates: start: 20080801
  2. EXJADE [Suspect]
     Indication: MYELODYSPLASTIC SYNDROME

REACTIONS (2)
  - ACUTE MYOCARDIAL INFARCTION [None]
  - INTESTINAL OBSTRUCTION [None]
